FAERS Safety Report 5144955-9 (Version None)
Quarter: 2006Q4

REPORT INFORMATION
  Report Type: 
  Country: None (occurrence: None)
  Receive Date: 20061107
  Receipt Date: 20061030
  Transmission Date: 20070319
  Serious: Yes (Other)
  Sender: FDA-Public Use
  Company Number: US-AVENTIS-200618964US

PATIENT
  Sex: Female

DRUGS (8)
  1. LANTUS [Suspect]
     Indication: DIABETES MELLITUS NON-INSULIN-DEPENDENT
     Dosage: DOSE: 50 UNITS IN AM AND 15 UNITS AT NIGHT
     Dates: start: 20060201
  2. HUMULIN 70/30 [Suspect]
     Dosage: DOSE: 15 UNITS 3-4 TIMES A DAY
  3. LASIX [Concomitant]
     Dosage: DOSE: UNK
  4. SYNTHROID [Concomitant]
     Dosage: DOSE: UNK
  5. VERAPAMIL [Concomitant]
     Dosage: DOSE: UNK
  6. VASOTEC                            /00935901/ [Concomitant]
     Dosage: DOSE: UNK
  7. TRAVATAN [Concomitant]
     Dosage: DOSE: UNK
  8. ADVIL [Concomitant]
     Dosage: DOSE: UNK

REACTIONS (12)
  - ABDOMINAL DISTENSION [None]
  - BLOOD GLUCOSE DECREASED [None]
  - BLOOD GLUCOSE INCREASED [None]
  - DIABETIC RETINOPATHY [None]
  - DYSURIA [None]
  - EYE HAEMORRHAGE [None]
  - FLUID RETENTION [None]
  - OEDEMA PERIPHERAL [None]
  - OLIGURIA [None]
  - RENAL DISORDER [None]
  - VISION BLURRED [None]
  - VISUAL DISTURBANCE [None]
